FAERS Safety Report 4880219-6 (Version None)
Quarter: 2006Q1

REPORT INFORMATION
  Report Type: 
  Country: None (occurrence: None)
  Receive Date: 20060111
  Receipt Date: 20051229
  Transmission Date: 20060701
  Serious: Yes (Other)
  Sender: FDA-Public Use
  Company Number: 2005170078

PATIENT
  Age: 54 Year
  Sex: Male
  Weight: 136.0791 kg

DRUGS (6)
  1. VIAGRA [Suspect]
     Indication: ERECTILE DYSFUNCTION
     Dosage: (25 MG)
     Dates: start: 20040101, end: 20040101
  2. ALLOPURINOL [Concomitant]
  3. CLONIDINE [Concomitant]
  4. AVANDIA [Concomitant]
  5. INSULIN [Concomitant]
  6. CRESTOR [Concomitant]

REACTIONS (4)
  - DIALYSIS [None]
  - DRUG EFFECT DECREASED [None]
  - DRUG INEFFECTIVE [None]
  - RENAL FAILURE [None]
